FAERS Safety Report 15269247 (Version 1)
Quarter: 2018Q3

REPORT INFORMATION
  Report Type: Report from Study
  Country: US (occurrence: US)
  Receive Date: 20180813
  Receipt Date: 20180813
  Transmission Date: 20181010
  Serious: Yes (Other)
  Sender: FDA-Public Use
  Company Number: US-EMD SERONO-E2B_80014442

PATIENT
  Age: 55 Year
  Sex: Female
  Weight: 85 kg

DRUGS (1)
  1. REBIF [Suspect]
     Active Substance: INTERFERON BETA-1A
     Indication: PRODUCT USED FOR UNKNOWN INDICATION
     Route: 058
     Dates: start: 20090610

REACTIONS (5)
  - Influenza like illness [Recovered/Resolved]
  - Carotid artery disease [Not Recovered/Not Resolved]
  - Mass [Not Recovered/Not Resolved]
  - Trigeminal neuralgia [Recovered/Resolved]
  - Radiation injury [Unknown]

NARRATIVE: CASE EVENT DATE: 201710
